FAERS Safety Report 20409798 (Version 1)
Quarter: 2022Q1

REPORT INFORMATION
  Report Type: Spontaneous
  Country: US (occurrence: US)
  Receive Date: 20220201
  Receipt Date: 20220201
  Transmission Date: 20220424
  Serious: No
  Sender: FDA-Public Use
  Company Number: US-SAREPTA THERAPEUTICS INC.-SRP2021-001840

PATIENT
  Age: 10 Year
  Sex: Male
  Weight: 38.549 kg

DRUGS (11)
  1. AMONDYS 45 [Suspect]
     Active Substance: CASIMERSEN
     Indication: Duchenne muscular dystrophy
     Dosage: 1200 MILLIGRAM, WEEKLY
     Route: 042
     Dates: start: 20210622, end: 20211014
  2. AMONDYS 45 [Suspect]
     Active Substance: CASIMERSEN
     Dosage: 1200 MILLIGRAM, WEEKLY
     Route: 042
     Dates: start: 20211112
  3. CALCIUM\CHOLECALCIFEROL [Concomitant]
     Active Substance: CALCIUM\CHOLECALCIFEROL
     Indication: Product used for unknown indication
     Dosage: 600-400, QD
     Route: 048
     Dates: start: 20210618
  4. CALCIUM\CHOLECALCIFEROL [Concomitant]
     Active Substance: CALCIUM\CHOLECALCIFEROL
     Dosage: 1 DOSAGE FORM, QD (400 UNIT CAPSULE, DAILY)
     Route: 048
     Dates: start: 20211014
  5. CLONIDINE HYDROCHLORIDE [Concomitant]
     Active Substance: CLONIDINE HYDROCHLORIDE
     Indication: Product used for unknown indication
     Dosage: 0.1 MILLIGRAM, EVERY EVENING
     Route: 048
     Dates: start: 20210618
  6. CLONIDINE HYDROCHLORIDE [Concomitant]
     Active Substance: CLONIDINE HYDROCHLORIDE
     Dosage: 1 DOSAGE FORM, QD (1 TABLET NIGHTLY)
     Route: 048
     Dates: start: 20211014
  7. PREDNISONE [Concomitant]
     Active Substance: PREDNISONE
     Indication: Product used for unknown indication
     Dosage: 20 MILLIGRAM, QD
     Route: 048
     Dates: start: 20210618
  8. PREDNISONE [Concomitant]
     Active Substance: PREDNISONE
     Dosage: 30 MILLIGRAM, QD (1 TABLET 20 MG AND 1 TABLET 10 MG, DAILY)
     Route: 048
     Dates: start: 20211014
  9. QUILLIVANT XR [Concomitant]
     Active Substance: METHYLPHENIDATE HYDROCHLORIDE
     Indication: Product used for unknown indication
     Dosage: 3 ML, QD
     Route: 048
     Dates: start: 20200414
  10. QUILLIVANT XR [Concomitant]
     Active Substance: METHYLPHENIDATE HYDROCHLORIDE
     Dosage: 15 MILLIGRAM, QD
     Route: 048
     Dates: start: 20210618
  11. ATARAX [Concomitant]
     Active Substance: HYDROXYZINE HYDROCHLORIDE
     Indication: Anxiety
     Dosage: 10 MILLIGRAM, AS NEEDED BEFORE INFUSIONS ( NO MORE THAN TWICE A DAY)
     Dates: start: 20211005

REACTIONS (3)
  - Device issue [Unknown]
  - Product dose omission issue [Unknown]
  - No adverse event [Unknown]

NARRATIVE: CASE EVENT DATE: 20211104
